FAERS Safety Report 17854264 (Version 5)
Quarter: 2021Q1

REPORT INFORMATION
  Report Type: Report from Study
  Country: US (occurrence: US)
  Receive Date: 20200603
  Receipt Date: 20210208
  Transmission Date: 20210419
  Serious: Yes (Other)
  Sender: FDA-Public Use
  Company Number: NVSC2020US153880

PATIENT
  Sex: Female

DRUGS (1)
  1. COSENTYX [Suspect]
     Active Substance: SECUKINUMAB
     Indication: ANKYLOSING SPONDYLITIS
     Dosage: 300 MG/KG, QW
     Route: 058

REACTIONS (4)
  - Uveitis [Unknown]
  - Joint swelling [Unknown]
  - Eye inflammation [Unknown]
  - Injection site pain [Not Recovered/Not Resolved]
